FAERS Safety Report 12507407 (Version 1)
Quarter: 2016Q2

REPORT INFORMATION
  Report Type: Spontaneous
  Country: US (occurrence: US)
  Receive Date: 20160629
  Receipt Date: 20160629
  Transmission Date: 20160815
  Serious: Yes (Hospitalization)
  Sender: FDA-Public Use
  Company Number: US-ACCORD-041821

PATIENT
  Age: 64 Year
  Sex: Female

DRUGS (9)
  1. BASILIXIMAB [Suspect]
     Active Substance: BASILIXIMAB
     Indication: INTESTINAL TRANSPLANT
     Dosage: 40 MG I.V. EVERY 4 WEEKS FOR THE FIRST 3 MONTHS
     Route: 042
  2. PREDNISONE. [Suspect]
     Active Substance: PREDNISONE
     Indication: INTESTINAL TRANSPLANT
     Dosage: LOW-DOSE PREDNISONE
  3. ANTITHYMOCYTE IMMUNOGLOBULIN [Suspect]
     Active Substance: THYMOCYTE IMMUNE GLOBULIN NOS
     Indication: INTESTINAL TRANSPLANT
     Dosage: 2 MG/KG OF BODY WEIGHT ; (I.V.) (5 DOSES)
     Route: 042
  4. METHYLPREDNISOLONE. [Suspect]
     Active Substance: METHYLPREDNISOLONE
     Indication: INTESTINAL TRANSPLANT
     Dosage: 500 MG I.V. EVERY 24 H (Q24H) (4 DOSES, FOLLOWED BY A SLOW TAPER OVER THE FIRST 2 WEEKS)
     Route: 042
  5. SULFAMETHOXAZOLE/TRIMETHOPRIM [Concomitant]
     Indication: ANTIFUNGAL PROPHYLAXIS
     Dosage: 80/400 MG P.O. THREE TIMES A WEEK
     Route: 048
  6. TACROLIMUS. [Suspect]
     Active Substance: TACROLIMUS
     Indication: INTESTINAL TRANSPLANT
  7. VALGANCICLOVIR/VALGANCICLOVIR HYDROCHLORIDE [Concomitant]
     Indication: ANTIVIRAL PROPHYLAXIS
     Dosage: 900 MG PER OS (P.O.) DAILY
     Route: 048
  8. RITUXIMAB [Suspect]
     Active Substance: RITUXIMAB
     Indication: INTESTINAL TRANSPLANT
     Dosage: 150 MG/M2 I.V. (1 DOSE)
     Route: 042
  9. GANCICLOVIR. [Concomitant]
     Active Substance: GANCICLOVIR
     Indication: ANTIVIRAL PROPHYLAXIS
     Dosage: 5 MG/KG I.V. Q12H FOR 2 WEEKS
     Route: 042

REACTIONS (6)
  - Respiratory failure [Unknown]
  - Off label use [Unknown]
  - Klebsiella infection [Recovering/Resolving]
  - Pancreatitis [Unknown]
  - Intra-abdominal haematoma [Unknown]
  - Renal failure [Unknown]
